FAERS Safety Report 21295439 (Version 1)
Quarter: 2022Q3

REPORT INFORMATION
  Report Type: Spontaneous
  Country: JP (occurrence: JP)
  Receive Date: 20220905
  Receipt Date: 20220905
  Transmission Date: 20221027
  Serious: Yes (Death, Hospitalization, Other)
  Sender: FDA-Public Use
  Company Number: JP-NOVARTISPH-NVSJ2022JP096765

PATIENT
  Age: 35 Year
  Sex: Female
  Weight: 53 kg

DRUGS (4)
  1. PAZOPANIB [Suspect]
     Active Substance: PAZOPANIB
     Indication: Pleomorphic liposarcoma
     Dosage: UNK
     Route: 065
  2. DOXORUBICIN [Suspect]
     Active Substance: DOXORUBICIN
     Indication: Pleomorphic liposarcoma
     Dosage: 3 COURSES
     Route: 065
  3. DOXORUBICIN [Suspect]
     Active Substance: DOXORUBICIN
     Dosage: 2 COURSES
     Route: 065
  4. IFOSFAMIDE [Concomitant]
     Active Substance: IFOSFAMIDE
     Indication: Pleomorphic liposarcoma
     Dosage: 3 COURSES
     Route: 065

REACTIONS (8)
  - Pleomorphic liposarcoma [Fatal]
  - Malignant neoplasm progression [Fatal]
  - Movement disorder [Fatal]
  - Cancer pain [Fatal]
  - Febrile neutropenia [Unknown]
  - Platelet count decreased [Unknown]
  - Drug intolerance [Unknown]
  - Product use in unapproved indication [Unknown]
